FAERS Safety Report 8882240 (Version 2)
Quarter: 2012Q4

REPORT INFORMATION
  Report Type: 
  Country: JP (occurrence: JP)
  Receive Date: 20121105
  Receipt Date: 20121126
  Transmission Date: 20130627
  Serious: Yes (Hospitalization, Other)
  Sender: FDA-Public Use
  Company Number: JP-JNJFOC-20121101117

PATIENT
  Age: 73 Year
  Sex: Female
  Weight: 32 kg

DRUGS (10)
  1. XARELTO [Suspect]
     Indication: ATRIAL FIBRILLATION
     Route: 048
     Dates: start: 20120625, end: 20121011
  2. XARELTO [Suspect]
     Indication: CEREBROVASCULAR ACCIDENT PROPHYLAXIS
     Route: 048
     Dates: start: 20120625, end: 20121011
  3. ADALAT-L [Concomitant]
     Route: 048
     Dates: start: 19900815
  4. SELECTOL [Concomitant]
     Route: 048
     Dates: start: 19900815
  5. DIGOXIN [Concomitant]
     Route: 048
  6. DIGOXIN [Concomitant]
     Route: 048
     Dates: start: 20061005
  7. GASTER [Concomitant]
     Route: 048
     Dates: start: 20091102
  8. CEREKINON [Concomitant]
     Route: 048
     Dates: start: 19901112
  9. URSO [Concomitant]
     Route: 048
     Dates: start: 19901112
  10. MITIGLINIDE [Concomitant]
     Route: 048
     Dates: start: 20120726

REACTIONS (3)
  - Cerebellar infarction [Recovering/Resolving]
  - Cerebral haemorrhage [Recovered/Resolved]
  - Fall [Recovered/Resolved]
